FAERS Safety Report 6784793-4 (Version None)
Quarter: 2010Q2

REPORT INFORMATION
  Report Type: 
  Country: None (occurrence: None)
  Receive Date: 20100622
  Receipt Date: 20100615
  Transmission Date: 20101027
  Serious: Yes (Other)
  Sender: FDA-Public Use
  Company Number: PHHO2010FR09114

PATIENT
  Sex: Male
  Weight: 72 kg

DRUGS (2)
  1. ZOLEDRONIC ACID [Suspect]
  2. SUTENT [Suspect]
     Indication: PROSTATE CANCER
     Dosage: UNK
     Dates: start: 20080610

REACTIONS (1)
  - OSTEONECROSIS OF JAW [None]
